FAERS Safety Report 4917753-6 (Version None)
Quarter: 2006Q1

REPORT INFORMATION
  Report Type: 
  Country: None (occurrence: None)
  Receive Date: 20060221
  Receipt Date: 20060213
  Transmission Date: 20060701
  Serious: Yes (Other)
  Sender: FDA-Public Use
  Company Number: US-BRISTOL-MYERS SQUIBB COMPANY-13286836

PATIENT
  Age: 58 Year
  Sex: Male

DRUGS (9)
  1. GATIFLOXACIN [Suspect]
     Indication: PNEUMONIA
     Route: 048
  2. METOPROLOL [Concomitant]
  3. ASPIRIN [Concomitant]
  4. PANTOPRAZOLE [Concomitant]
  5. CLONIDINE [Concomitant]
  6. FUROSEMIDE [Concomitant]
  7. METRONIDAZOLE [Concomitant]
  8. EPOETIN ALFA [Concomitant]
  9. GLYBURIDE [Concomitant]

REACTIONS (5)
  - GLYCOSYLATED HAEMOGLOBIN INCREASED [None]
  - HEPATIC FUNCTION ABNORMAL [None]
  - HYPOGLYCAEMIA [None]
  - PROTEIN TOTAL DECREASED [None]
  - WHITE BLOOD CELL COUNT INCREASED [None]
